FAERS Safety Report 24585176 (Version 1)
Quarter: 2024Q4

REPORT INFORMATION
  Report Type: Spontaneous
  Country: US (occurrence: US)
  Receive Date: 20241106
  Receipt Date: 20241106
  Transmission Date: 20250115
  Serious: No
  Sender: PFIZER
  Company Number: US-PFIZER INC-202400293235

PATIENT
  Age: 76 Year
  Sex: Female

DRUGS (1)
  1. METHOTREXATE SODIUM [Suspect]
     Active Substance: METHOTREXATE SODIUM
     Indication: Arthropathy
     Dosage: UNK

REACTIONS (5)
  - Drug intolerance [Unknown]
  - Nightmare [Unknown]
  - Diarrhoea [Unknown]
  - Osteoporosis [Unknown]
  - Off label use [Unknown]

NARRATIVE: CASE EVENT DATE: 20220609
